FAERS Safety Report 6493030-X (Version None)
Quarter: 2009Q4

REPORT INFORMATION
  Report Type: 
  Country: None (occurrence: None)
  Receive Date: 20091209
  Receipt Date: 20091125
  Transmission Date: 20100525
  Serious: Yes (Other)
  Sender: FDA-Public Use
  Company Number: 233578J09USA

PATIENT
  Age: 35 Year
  Sex: Female
  Weight: 52 kg

DRUGS (5)
  1. REBIF [Suspect]
     Indication: MULTIPLE SCLEROSIS
     Dosage: 44 MCG, 3 IN 1 WEEKS, SUBCUTANEOUS
     Route: 058
     Dates: start: 20080116
  2. ALLEGRA D (ALLEGRA-D /01367401/) [Concomitant]
  3. OMEPRAZOLE [Concomitant]
  4. NASONEX [Concomitant]
  5. VITAMIN D [Concomitant]

REACTIONS (4)
  - COELIAC DISEASE [None]
  - HEADACHE [None]
  - INJECTION SITE ERYTHEMA [None]
  - RAYNAUD'S PHENOMENON [None]
